FAERS Safety Report 8500125-5 (Version None)
Quarter: 2012Q3

REPORT INFORMATION
  Report Type: 
  Country: None (occurrence: None)
  Receive Date: 20120710
  Receipt Date: 20120705
  Transmission Date: 20120928
  Serious: Yes (Other)
  Sender: FDA-Public Use
  Company Number: US-PFIZER INC-2012161927

PATIENT
  Sex: Female
  Weight: 72.562 kg

DRUGS (3)
  1. ACETYLSALICYLIC ACID [Concomitant]
     Indication: CARDIOVASCULAR EVENT PROPHYLAXIS
     Dosage: 81 MG, IN THE MORNING, DAILY
  2. LIPITOR [Suspect]
     Indication: BLOOD CHOLESTEROL INCREASED
     Dosage: 20 MG, UNK
     Route: 048
     Dates: start: 20000101, end: 20120101
  3. ACETAMINOPHEN [Concomitant]
     Dosage: 25 MG, UNK
     Dates: start: 20120123

REACTIONS (5)
  - DECREASED ACTIVITY [None]
  - STRESS [None]
  - OEDEMA PERIPHERAL [None]
  - WEIGHT INCREASED [None]
  - ASTHENIA [None]
